FAERS Safety Report 12713254 (Version 1)
Quarter: 2016Q3

REPORT INFORMATION
  Report Type: Spontaneous
  Country: DE (occurrence: DE)
  Receive Date: 20160902
  Receipt Date: 20160902
  Transmission Date: 20161109
  Serious: Yes (Hospitalization, Other)
  Sender: FDA-Public Use
  Company Number: US-ASTRAZENECA-2016SE52227

PATIENT
  Age: 1 Year
  Sex: Male

DRUGS (8)
  1. SYNAGIS [Suspect]
     Active Substance: PALIVIZUMAB
     Indication: PREMATURE BABY
     Dosage: 15MG /1 KG BODY WEIGHT
     Route: 030
     Dates: start: 20151228, end: 20151228
  2. SYNAGIS [Suspect]
     Active Substance: PALIVIZUMAB
     Indication: PREMATURE BABY
     Dosage: 15MG /1 KG BODY WEIGHT
     Route: 030
     Dates: start: 20151022, end: 20151022
  3. SYNAGIS [Suspect]
     Active Substance: PALIVIZUMAB
     Indication: PREMATURE BABY
     Dosage: 15MG /1 KG BODY WEIGHT
     Route: 030
     Dates: start: 20151120, end: 20151120
  4. SYNAGIS [Suspect]
     Active Substance: PALIVIZUMAB
     Indication: PREMATURE BABY
     Dosage: 15MG /1 KG BODY WEIGHT
     Route: 030
     Dates: start: 20160115, end: 20160115
  5. SYNAGIS [Suspect]
     Active Substance: PALIVIZUMAB
     Indication: PREMATURE BABY
     Dosage: 15MG /1 KG BODY WEIGHT
     Route: 030
     Dates: start: 20160211, end: 20160211
  6. SYNAGIS [Suspect]
     Active Substance: PALIVIZUMAB
     Indication: PREMATURE BABY
     Dosage: 15MG /1 KG BODY WEIGHT
     Route: 030
     Dates: start: 20160408, end: 20160408
  7. SYNAGIS [Suspect]
     Active Substance: PALIVIZUMAB
     Indication: PREMATURE BABY
     Dosage: 15MG /1 KG BODY WEIGHT
     Route: 030
     Dates: start: 20160429
  8. SYNAGIS [Suspect]
     Active Substance: PALIVIZUMAB
     Indication: PREMATURE BABY
     Dosage: 15MG /1 KG BODY WEIGHT
     Route: 030
     Dates: start: 20160311, end: 20160311

REACTIONS (2)
  - Asthma [Unknown]
  - Pneumonia respiratory syncytial viral [Recovered/Resolved]

NARRATIVE: CASE EVENT DATE: 2016
